FAERS Safety Report 10760839 (Version 1)
Quarter: 2015Q1

REPORT INFORMATION
  Report Type: Spontaneous
  Country: US (occurrence: None)
  Receive Date: 20150202
  Receipt Date: 20150202
  Transmission Date: 20150721
  Serious: Yes (Hospitalization)
  Sender: FDA-Public Use
  Company Number: NSR_01799_2015

PATIENT
  Age: 34 Year
  Sex: Female

DRUGS (2)
  1. PROPRANOLOL [Suspect]
     Active Substance: PROPRANOLOL\PROPRANOLOL HYDROCHLORIDE
     Indication: PRODUCT USED FOR UNKNOWN INDICATION
     Dosage: LARGE AMOUNTS (UNKNOWN UNTIL NOT CONTINUING)?
  2. CLONAZEPAM. [Suspect]
     Active Substance: CLONAZEPAM
     Indication: PRODUCT USED FOR UNKNOWN INDICATION
     Dosage: LARGE AMOUNTS (UNKNOWN UNTIL NOT CONTINUING)?

REACTIONS (7)
  - Unresponsive to stimuli [None]
  - Bradycardia [None]
  - Intentional overdose [None]
  - Electrocardiogram abnormal [None]
  - Toxicity to various agents [None]
  - Hypotension [None]
  - Respiration abnormal [None]
